FAERS Safety Report 14438102 (Version 1)
Quarter: 2018Q1

REPORT INFORMATION
  Report Type: Spontaneous
  Country: CN (occurrence: CN)
  Receive Date: 20180125
  Receipt Date: 20180125
  Transmission Date: 20180509
  Serious: Yes (Hospitalization, Other)
  Sender: FDA-Public Use
  Company Number: PHHY2018CN008994

PATIENT
  Age: 69 Year
  Sex: Male

DRUGS (5)
  1. CARBAMAZEPINE. [Suspect]
     Active Substance: CARBAMAZEPINE
     Dosage: 200 MG, DOSE WAS ADJUSTED TO 200 MG/100 MG/D, WITH THERAPEUTIC DRUG MONITORING (TDM)
     Route: 065
  2. OMEPRAZOLE. [Concomitant]
     Active Substance: OMEPRAZOLE
     Indication: GASTROOESOPHAGEAL REFLUX DISEASE
     Dosage: HE HAD BEEN TAKING OMEPRAZOLE FOR }3 MONTHS
  3. CARBAMAZEPINE. [Suspect]
     Active Substance: CARBAMAZEPINE
     Dosage: 200 MG, TAKING CBZ FOR 10 YEARS
     Route: 065
  4. CARBAMAZEPINE. [Suspect]
     Active Substance: CARBAMAZEPINE
     Indication: EPILEPSY
     Dosage: 100 MG, DOSE WAS ADJUSTED TO 200 MG/100 MG/D, WITH THERAPEUTIC DRUG MONITORING (TDM)
     Route: 065
  5. THIAMAZOLE [Suspect]
     Active Substance: METHIMAZOLE
     Indication: HYPERTHYROIDISM
     Dosage: 10 MG, INITIATED 4 WEEKS BEFORE ADMISSION
     Route: 065

REACTIONS (3)
  - Drug level increased [Recovered/Resolved]
  - Hepatitis cholestatic [Recovered/Resolved]
  - Drug-induced liver injury [Recovered/Resolved]
